FAERS Safety Report 9855660 (Version 2)
Quarter: 2014Q1

REPORT INFORMATION
  Report Type: Spontaneous
  Country: US (occurrence: US)
  Receive Date: 20140130
  Receipt Date: 20140307
  Transmission Date: 20141002
  Serious: Yes (Hospitalization)
  Sender: FDA-Public Use
  Company Number: US-SHIRE-ALL1-2014-00494

PATIENT
  Sex: Female

DRUGS (1)
  1. PENTASA [Suspect]
     Indication: CROHN^S DISEASE
     Dosage: UNK, UNKNOWN
     Route: 048

REACTIONS (3)
  - Hospitalisation [Unknown]
  - Activities of daily living impaired [Not Recovered/Not Resolved]
  - Off label use [Unknown]
